FAERS Safety Report 19114863 (Version 4)
Quarter: 2022Q3

REPORT INFORMATION
  Report Type: Spontaneous
  Country: FR (occurrence: FR)
  Receive Date: 20210409
  Receipt Date: 20220929
  Transmission Date: 20221027
  Serious: Yes (Life-Threatening, Hospitalization)
  Sender: FDA-Public Use
  Company Number: FR-NORDICGR-2021000820

PATIENT
  Age: 62 Year
  Sex: Male
  Weight: 104 kg

DRUGS (13)
  1. APROTININ [Suspect]
     Active Substance: APROTININ
     Indication: Ventricular assist device insertion
     Dosage: 3 MEGA-INTERNATIONAL UNIT TOTAL LOADING DOSE 1 MILLION IU PUMP PRIMING DOSE 1 MILLION IU MAINTENANCE
     Route: 042
     Dates: start: 20210211, end: 20210211
  2. CONFIDEX [Concomitant]
     Active Substance: COAGULATION FACTOR IX HUMAN\COAGULATION FACTOR VII HUMAN\COAGULATION FACTOR X HUMAN\PROTEIN C\PROTEI
     Indication: Ventricular assist device insertion
     Dosage: 2000 INTERNATIONAL UNIT TOTAL
     Route: 042
     Dates: start: 20210211, end: 20210211
  3. ASPIRIN [Concomitant]
     Active Substance: ASPIRIN
     Indication: Antiplatelet therapy
  4. HEPARIN [Concomitant]
     Active Substance: HEPARIN SODIUM
     Indication: Anticoagulant therapy
  5. HUMAN RED BLOOD CELL [Concomitant]
     Active Substance: HUMAN RED BLOOD CELL
  6. HEPARIN [Concomitant]
     Active Substance: HEPARIN SODIUM
     Indication: Product used for unknown indication
     Dosage: 70 KILO-INTERNATIONAL UNIT DURING SURGERY
     Route: 042
     Dates: start: 20210211, end: 20210211
  7. RAMIPRIL [Suspect]
     Active Substance: RAMIPRIL
  8. PROPOFOL [Concomitant]
     Active Substance: PROPOFOL
     Indication: Product used for unknown indication
     Dosage: UNK
     Route: 065
  9. ATORVASTATIN [Suspect]
     Active Substance: ATORVASTATIN
  10. CLOPIDOGREL [Suspect]
     Active Substance: CLOPIDOGREL BISULFATE
  11. PRADAXA [Suspect]
     Active Substance: DABIGATRAN ETEXILATE MESYLATE
  12. SUFENTANIL [Concomitant]
     Active Substance: SUFENTANIL
     Indication: Product used for unknown indication
     Dosage: UNK
     Route: 065
  13. TRACRIUM [Concomitant]
     Active Substance: ATRACURIUM BESYLATE
     Indication: Product used for unknown indication
     Dosage: UNK
     Route: 065

REACTIONS (5)
  - Coronary artery occlusion [Not Recovered/Not Resolved]
  - Cerebrovascular accident [Not Recovered/Not Resolved]
  - Hypoxic-ischaemic encephalopathy [Not Recovered/Not Resolved]
  - Product use in unapproved indication [Unknown]
  - Off label use [Unknown]

NARRATIVE: CASE EVENT DATE: 20210211
